FAERS Safety Report 25023921 (Version 1)
Quarter: 2025Q1

REPORT INFORMATION
  Report Type: Spontaneous
  Country: CA (occurrence: CA)
  Receive Date: 20250228
  Receipt Date: 20250228
  Transmission Date: 20250409
  Serious: Yes (Death, Other)
  Sender: RECKITT BENCKISER
  Company Number: CA-Indivior Limited-INDV-159347-2025

PATIENT

DRUGS (2)
  1. SUBLOCADE [Suspect]
     Active Substance: BUPRENORPHINE
     Indication: Product used for unknown indication
     Dosage: 300 MILLIGRAM, QMO
     Route: 065
  2. SUBLOCADE [Suspect]
     Active Substance: BUPRENORPHINE

REACTIONS (3)
  - Death [Fatal]
  - Thrombosis [Unknown]
  - Injection site infection [Unknown]
